FAERS Safety Report 12847428 (Version 1)
Quarter: 2016Q4

REPORT INFORMATION
  Report Type: Spontaneous
  Country: CH (occurrence: CH)
  Receive Date: 20161014
  Receipt Date: 20161014
  Transmission Date: 20170207
  Serious: Yes (Hospitalization)
  Sender: FDA-Public Use
  Company Number: CH-PFIZER INC-2016464142

PATIENT
  Age: 66 Year
  Sex: Male

DRUGS (16)
  1. ROCEPHIN [Suspect]
     Active Substance: CEFTRIAXONE SODIUM
     Indication: PNEUMONIA
     Dosage: 2 G, 1X/DAY
     Route: 065
     Dates: start: 20160821, end: 20160826
  2. ANAFRANIL [Concomitant]
     Active Substance: CLOMIPRAMINE HYDROCHLORIDE
     Dosage: 75 MG, 2X/DAY (2-0-0-0)
  3. IMUREK /00001501/ [Concomitant]
     Active Substance: AZATHIOPRINE
     Dosage: 50 MG, 1X/DAY (1-0-0-0)
  4. DAFALGAN [Concomitant]
     Active Substance: ACETAMINOPHEN
     Dosage: 1000 MG, 4X/DAY (1-1-1-1)
     Route: 048
  5. NEOTIGASON [Concomitant]
     Active Substance: ACITRETIN
     Dosage: 25 MG, 1X/DAY (1-0-0-0)
     Route: 065
  6. CARDURA CR [Suspect]
     Active Substance: DOXAZOSIN MESYLATE
     Dosage: 4 MG, 1X/DAY (0-1-0-0)
     Route: 048
     Dates: start: 20160828
  7. SELIPRAN [Concomitant]
     Active Substance: PRAVASTATIN SODIUM
     Dosage: 40 MG, 1X/DAY (0-0-1-0)
  8. AUGMENTIN [Suspect]
     Active Substance: AMOXICILLIN\CLAVULANATE POTASSIUM
     Indication: PNEUMONIA
     Dosage: 625 MG, 2X/DAY
     Route: 065
     Dates: start: 20160827, end: 20160830
  9. ASPIRIN CARDIO [Concomitant]
     Active Substance: ASPIRIN
     Dosage: 100 MG, 1X/DAY (1-0-0-0)
     Route: 048
  10. ZANIDIP [Concomitant]
     Active Substance: LERCANIDIPINE HYDROCHLORIDE
     Dosage: 10 MG, 2X/DAY (1-0-1-0)
  11. BELOC /00376903/ [Concomitant]
     Active Substance: METOPROLOL TARTRATE
     Dosage: 25 MG, 2X/DAY (1-0-1-0)
  12. NEPHROTRANS [Concomitant]
     Active Substance: SODIUM BICARBONATE
     Dosage: 9X/DAY (3-3-3-0)
  13. NICOTINAMID [Concomitant]
     Dosage: 500 MG, 2X/DAY (1-0-1-0)
  14. NOVALGIN [Concomitant]
     Active Substance: METAMIZOLE SODIUM
     Dosage: 20 GTT, 1X/DAY (1-0-0-0) (25 MG/DROP)
  15. PREDNISON GALEPHARM [Concomitant]
     Active Substance: PREDNISONE
     Dosage: 20 MG (0.5-0-0-0)
  16. SURMONTIL [Concomitant]
     Active Substance: TRIMIPRAMINE MALEATE
     Dosage: 100 MG (1.5-0-0-0)

REACTIONS (1)
  - Enteritis [Recovering/Resolving]

NARRATIVE: CASE EVENT DATE: 20160902
